FAERS Safety Report 9954991 (Version 1)
Quarter: 2014Q1

REPORT INFORMATION
  Report Type: Report from Study
  Country: US (occurrence: US)
  Receive Date: 20140304
  Receipt Date: 20140304
  Transmission Date: 20141002
  Serious: No
  Sender: FDA-Public Use
  Company Number: US-ABBVIE-13P-163-1078553-00

PATIENT
  Age: 27 Year
  Sex: Female

DRUGS (4)
  1. HUMIRA [Suspect]
     Indication: COLITIS ULCERATIVE
     Dosage: LOADING DOSE
     Dates: start: 20130321, end: 20130321
  2. HUMIRA [Suspect]
     Dosage: LOADING DOSE
     Dates: start: 20130404, end: 20130404
  3. IMURAN [Concomitant]
     Indication: COLITIS ULCERATIVE
  4. APRISO [Concomitant]
     Indication: COLITIS ULCERATIVE

REACTIONS (3)
  - Arthropod bite [Not Recovered/Not Resolved]
  - Upper-airway cough syndrome [Not Recovered/Not Resolved]
  - Injection site pain [Not Recovered/Not Resolved]
